FAERS Safety Report 23620203 (Version 1)
Quarter: 2024Q1

REPORT INFORMATION
  Report Type: Spontaneous
  Country: CN (occurrence: CN)
  Receive Date: 20240312
  Receipt Date: 20240312
  Transmission Date: 20240410
  Serious: Yes (Other)
  Sender: FDA-Public Use
  Company Number: CN-MLMSERVICE-20240301-4855185-1

PATIENT
  Age: 40 Year
  Sex: Male

DRUGS (3)
  1. PACLITAXEL [Suspect]
     Active Substance: PACLITAXEL
     Indication: Lung squamous cell carcinoma stage IV
     Dosage: DAY 1
     Dates: start: 20210618
  2. PACLITAXEL [Suspect]
     Active Substance: PACLITAXEL
     Dosage: ON DAY-1
     Dates: start: 20210709
  3. PEMBROLIZUMAB [Concomitant]
     Active Substance: PEMBROLIZUMAB
     Indication: Lung squamous cell carcinoma stage IV
     Dosage: DAY 1
     Dates: start: 20210618, end: 202307

REACTIONS (3)
  - Neurotoxicity [Recovered/Resolved]
  - Hypoaesthesia [Recovered/Resolved]
  - Off label use [Unknown]

NARRATIVE: CASE EVENT DATE: 20210101
